FAERS Safety Report 23842806 (Version 2)
Quarter: 2024Q2

REPORT INFORMATION
  Report Type: Report from Study
  Country: DE (occurrence: DE)
  Receive Date: 20240510
  Receipt Date: 20240528
  Transmission Date: 20240716
  Serious: Yes (Death, Hospitalization)
  Sender: FDA-Public Use
  Company Number: DE-BAXTER-2024BAX018068

PATIENT
  Age: 63 Year
  Sex: Female

DRUGS (4)
  1. AMINO ACIDS\DEXTROSE\ELECTROLYTES NOS\SOYBEAN OIL [Suspect]
     Active Substance: AMINO ACIDS\DEXTROSE\ELECTROLYTES NOS\SOYBEAN OIL
     Indication: Parenteral nutrition
     Dosage: 1435 MILLILITERS (ML) AT AN UNSPECIFIED FREQUENCY VIA CENTRAL VENOUS ROUTE
     Route: 042
     Dates: start: 20240326, end: 20240418
  2. CERNEVIT [Suspect]
     Active Substance: VITAMINS
     Indication: Parenteral nutrition
     Dosage: 750 MILLIGRAMS (MG) AT AN UNSPECIFIED FREQUENCY VIA CENTRAL VENOUS ROUTE
     Route: 042
     Dates: start: 20240326, end: 20240418
  3. ELECTROLYTES NOS\MINERALS [Suspect]
     Active Substance: ELECTROLYTES NOS\MINERALS
     Indication: Parenteral nutrition
     Dosage: (MANUFACTURER: LABORATOIRE AGUETTANT, S.A.S.), 10 MILLILITERS (ML) AT AN UNSPECIFIED FREQUENCY VIA C
     Route: 042
     Dates: start: 20240326, end: 20240418
  4. UNSPECIFIED INGREDIENT [Suspect]
     Active Substance: UNSPECIFIED INGREDIENT
     Route: 065

REACTIONS (1)
  - General physical health deterioration [Fatal]

NARRATIVE: CASE EVENT DATE: 20240418
